FAERS Safety Report 4919768-0 (Version None)
Quarter: 2006Q1

REPORT INFORMATION
  Report Type: 
  Country: None (occurrence: None)
  Receive Date: 20060216
  Receipt Date: 20060208
  Transmission Date: 20060701
  Serious: Yes (Death, Hospitalization, Other)
  Sender: FDA-Public Use
  Company Number: 200610073BFR

PATIENT
  Age: 64 Year
  Sex: Male
  Weight: 87 kg

DRUGS (11)
  1. SORAFENIB [Suspect]
     Indication: METASTATIC RENAL CELL CARCINOMA
     Dosage: SEE IMAGE
     Route: 048
     Dates: start: 20050927, end: 20051121
  2. SORAFENIB [Suspect]
     Indication: METASTATIC RENAL CELL CARCINOMA
     Dosage: SEE IMAGE
     Route: 048
     Dates: start: 20051121, end: 20060104
  3. SORAFENIB [Suspect]
     Indication: METASTATIC RENAL CELL CARCINOMA
     Dosage: SEE IMAGE
     Route: 048
     Dates: start: 20031202
  4. SORAFENIB [Suspect]
  5. ZOCOR [Concomitant]
  6. DEXERYL ^PIERRE FABRE^ [Concomitant]
  7. IMODIUM [Concomitant]
  8. BIAFINE [Concomitant]
  9. TIORFAN [Concomitant]
  10. TRIFLUCAN [Concomitant]
  11. CIFLOX [Concomitant]

REACTIONS (10)
  - ABDOMINAL DISTENSION [None]
  - ABDOMINAL PAIN [None]
  - ASTHENIA [None]
  - DISEASE PROGRESSION [None]
  - DRUG INEFFECTIVE [None]
  - GENERAL PHYSICAL HEALTH DETERIORATION [None]
  - HEPATOJUGULAR REFLUX [None]
  - HEPATOMEGALY [None]
  - MEDIASTINUM NEOPLASM [None]
  - REFUSAL OF TREATMENT BY PATIENT [None]
